FAERS Safety Report 8949561 (Version 1)
Quarter: 2012Q4

REPORT INFORMATION
  Report Type: 
  Country: US (occurrence: US)
  Receive Date: 20121206
  Receipt Date: 20121206
  Transmission Date: 20130627
  Serious: No
  Sender: FDA-Public Use
  Company Number: US-009507513-2012SP036477

PATIENT
  Sex: Female
  Weight: 58.96 kg

DRUGS (2)
  1. CLARITIN [Suspect]
     Indication: PRODUCT USED FOR UNKNOWN INDICATION
     Dosage: 10 mg, qd
     Route: 048
  2. CLARITIN [Suspect]
     Indication: MEDICAL OBSERVATION

REACTIONS (3)
  - Hypersensitivity [Unknown]
  - Tremor [Unknown]
  - Visual impairment [Unknown]
